FAERS Safety Report 8309350-X (Version None)
Quarter: 2012Q2

REPORT INFORMATION
  Report Type: 
  Country: None (occurrence: None)
  Receive Date: 20120425
  Receipt Date: 20120413
  Transmission Date: 20120825
  Serious: Yes (Other)
  Sender: FDA-Public Use
  Company Number: US-ASTRAZENECA-2012SE24666

PATIENT
  Age: 62 Year
  Sex: Male

DRUGS (19)
  1. FUROSEMIDE [Concomitant]
     Indication: OEDEMA
     Route: 048
     Dates: start: 20120326
  2. ACCUPRIL [Concomitant]
     Indication: ESSENTIAL HYPERTENSION
     Route: 048
     Dates: start: 20111102
  3. NEXIUM [Suspect]
     Route: 048
     Dates: start: 20111101
  4. CRESTOR [Suspect]
     Route: 048
     Dates: start: 20111101
  5. ATENOLOL [Suspect]
     Indication: ESSENTIAL HYPERTENSION
     Route: 048
     Dates: start: 20110714
  6. PROMETHAZINE DM [Concomitant]
     Indication: COUGH
     Dosage: 6.25-15MG/ 5ML 1 TO 2 FOUR TIMES DAILY
     Route: 048
     Dates: start: 20120308
  7. ALPRAZOLAM [Concomitant]
     Indication: GENERALISED ANXIETY DISORDER
     Dosage: HALF TO ONE TWO TIMES DAILY AS NEEDED
     Route: 048
     Dates: start: 20120326
  8. METOCLOPRAMIDE HYDROCHLORIDE [Concomitant]
     Indication: DIABETIC GASTROPARESIS
     Route: 048
     Dates: start: 20120127
  9. SOMA [Concomitant]
     Indication: SCIATICA
     Route: 048
     Dates: start: 20120214
  10. JANUMET [Concomitant]
     Indication: DIABETES MELLITUS
     Dosage: 50-1000MG TWICE DAILY FOR 90 DAYS
     Route: 048
     Dates: start: 20120202
  11. ACTOS [Concomitant]
     Route: 048
     Dates: start: 20120104
  12. POTASSIUM CHLORIDE CRYS CR [Concomitant]
     Route: 048
     Dates: start: 20111021
  13. PAROXETINE HCL [Concomitant]
     Indication: DYSTHYMIC DISORDER
     Route: 048
     Dates: start: 20120202
  14. GLUCOTROL XL [Concomitant]
     Indication: DIABETES MELLITUS
     Route: 048
     Dates: start: 20120202
  15. NOVOLOG [Concomitant]
     Dosage: 100UNIT/ML 20 BEFORE EVERY MEAL
     Route: 058
     Dates: start: 20120228
  16. MUCINEX D [Concomitant]
     Indication: NASAL CONGESTION
     Dosage: 120-1200MG 12 HR TWO TIMES DAILY AS NEEDED
     Route: 048
     Dates: start: 20120227
  17. SOMA [Concomitant]
     Route: 048
     Dates: start: 20120214
  18. LANTUS [Concomitant]
     Dosage: 100UNIT/ML 55 TWO TIMES DAILY FOR 90 DAYS
     Route: 058
     Dates: start: 20120202
  19. LYRICA [Concomitant]
     Indication: CONVULSION
     Route: 048
     Dates: start: 20111213

REACTIONS (16)
  - VERTIGO [None]
  - DIABETIC NEUROPATHY [None]
  - HYPERTENSION [None]
  - TREMOR [None]
  - SINUSITIS [None]
  - OTITIS MEDIA [None]
  - NAIL DISORDER [None]
  - COUGH [None]
  - HYPOKALAEMIA [None]
  - PNEUMONIA [None]
  - OTITIS EXTERNA [None]
  - DIABETIC GASTROPARESIS [None]
  - ANXIETY [None]
  - DIABETES MELLITUS INADEQUATE CONTROL [None]
  - GASTROENTERITIS VIRAL [None]
  - NECK PAIN [None]
